FAERS Safety Report 7216438-3 (Version None)
Quarter: 2011Q1

REPORT INFORMATION
  Report Type: 
  Country: None (occurrence: None)
  Receive Date: 20110107
  Receipt Date: 20101224
  Transmission Date: 20110831
  Serious: No
  Sender: FDA-Public Use
  Company Number: US-B.I. PHARMACEUTICALS,INC./RIDGEFIELD-2011-BP-00131BP

PATIENT
  Sex: Female

DRUGS (9)
  1. PREVACID [Concomitant]
     Route: 048
  2. CRESTOR [Concomitant]
     Indication: BLOOD CHOLESTEROL INCREASED
     Dosage: 20 MG
     Route: 048
  3. PRADAXA [Suspect]
     Indication: ATRIAL FIBRILLATION
     Dosage: 300 MG
     Route: 048
     Dates: start: 20101201
  4. LOSARTAN POTASSIUM [Concomitant]
     Indication: HYPERTENSION
     Dosage: 50 MG
     Route: 048
  5. VITAMIN B-12 [Concomitant]
     Route: 060
  6. METOPROLOL TARTRATE [Concomitant]
     Indication: HYPERTENSION
     Dosage: 200 MG
     Route: 048
  7. KRILL OIL [Concomitant]
     Route: 048
  8. VITAMIN D [Concomitant]
     Route: 048
  9. NIACIN [Concomitant]
     Dosage: 250 MG
     Route: 048

REACTIONS (3)
  - NAUSEA [None]
  - ABDOMINAL PAIN [None]
  - MALAISE [None]
